FAERS Safety Report 9657288 (Version 1)
Quarter: 2013Q4

REPORT INFORMATION
  Report Type: Spontaneous
  Country: DE (occurrence: DE)
  Receive Date: 20131030
  Receipt Date: 20131030
  Transmission Date: 20140711
  Serious: Yes (Hospitalization)
  Sender: FDA-Public Use
  Company Number: DE-SA-2013SA107697

PATIENT
  Age: 62 Year
  Sex: Female

DRUGS (3)
  1. MULTAQ [Suspect]
     Indication: PRODUCT USED FOR UNKNOWN INDICATION
     Route: 048
     Dates: start: 201306
  2. VALSARTAN [Concomitant]
  3. BELOC-ZOK [Concomitant]

REACTIONS (6)
  - Arrhythmia [Unknown]
  - Blood pressure decreased [Unknown]
  - Performance status decreased [Unknown]
  - Dyspepsia [Unknown]
  - Diarrhoea [Unknown]
  - Ageusia [Unknown]
